FAERS Safety Report 24729867 (Version 2)
Quarter: 2025Q1

REPORT INFORMATION
  Report Type: Spontaneous
  Country: FR (occurrence: FR)
  Receive Date: 20241213
  Receipt Date: 20250324
  Transmission Date: 20250408
  Serious: Yes (Hospitalization, Other)
  Sender: ABBVIE
  Company Number: None

PATIENT
  Age: 30 Year
  Sex: Female
  Weight: 59 kg

DRUGS (14)
  1. BOTOX COSMETIC [Suspect]
     Active Substance: ONABOTULINUMTOXINA
     Indication: Pelvic floor dysfunction
     Route: 030
     Dates: start: 20240822, end: 20240822
  2. KETAMINE [Suspect]
     Active Substance: KETAMINE
     Indication: Pain
     Dosage: FROM MONDAY TO FRIDAY
     Route: 065
     Dates: start: 20231120
  3. LACTULOSE [Concomitant]
     Active Substance: LACTULOSE
     Indication: Product used for unknown indication
  4. PINAVERIUM BROMIDE [Concomitant]
     Active Substance: PINAVERIUM BROMIDE
     Indication: Product used for unknown indication
  5. ACUPAN [Concomitant]
     Active Substance: NEFOPAM HYDROCHLORIDE
     Indication: Product used for unknown indication
  6. PHLOROGLUCINOL [Concomitant]
     Active Substance: PHLOROGLUCINOL
     Indication: Product used for unknown indication
     Route: 065
  7. ACETAMINOPHEN [Concomitant]
     Active Substance: ACETAMINOPHEN
     Indication: Product used for unknown indication
  8. BECLOMETHASONE DIPROPIONATE [Concomitant]
     Active Substance: BECLOMETHASONE DIPROPIONATE
     Indication: Product used for unknown indication
  9. PRUCALOPRIDE SUCCINATE [Concomitant]
     Active Substance: PRUCALOPRIDE SUCCINATE
     Indication: Product used for unknown indication
  10. DESOGESTREL [Concomitant]
     Active Substance: DESOGESTREL
     Indication: Product used for unknown indication
  11. CETIRIZINE [Concomitant]
     Active Substance: CETIRIZINE HYDROCHLORIDE
     Indication: Product used for unknown indication
  12. CYAMEMAZINE [Concomitant]
     Active Substance: CYAMEMAZINE
     Indication: Product used for unknown indication
  13. VALIUM [Concomitant]
     Active Substance: DIAZEPAM
     Indication: Product used for unknown indication
  14. METEOSPASMYL [Concomitant]
     Indication: Product used for unknown indication

REACTIONS (1)
  - Urinary incontinence [Recovered/Resolved]

NARRATIVE: CASE EVENT DATE: 20240827
